FAERS Safety Report 15698913 (Version 1)
Quarter: 2018Q4

REPORT INFORMATION
  Report Type: Spontaneous
  Country: US (occurrence: US)
  Receive Date: 20181207
  Receipt Date: 20181207
  Transmission Date: 20190205
  Serious: Yes (Other)
  Sender: FDA-Public Use
  Company Number: None

PATIENT
  Age: 53 Year
  Sex: Female
  Weight: 78.75 kg

DRUGS (2)
  1. HYDROCHLOROTHIAZIDE, 25 MG TABLET [Suspect]
     Active Substance: HYDROCHLOROTHIAZIDE
     Indication: HYPERTENSION
     Dosage: ?          QUANTITY:1 TABLET(S);?
     Route: 048
     Dates: start: 20181031, end: 20181206
  2. FELODOPINE ER, 2.5 MG [Concomitant]

REACTIONS (8)
  - Abdominal pain upper [None]
  - Fear [None]
  - Intentional dose omission [None]
  - Feeling of body temperature change [None]
  - Headache [None]
  - Pain [None]
  - Paraesthesia [None]
  - Product substitution issue [None]

NARRATIVE: CASE EVENT DATE: 20181031
